FAERS Safety Report 19766669 (Version 1)
Quarter: 2021Q3

REPORT INFORMATION
  Report Type: Spontaneous
  Country: GB (occurrence: GB)
  Receive Date: 20210830
  Receipt Date: 20210830
  Transmission Date: 20211014
  Serious: Yes (Hospitalization, Disabling, Other)
  Sender: FDA-Public Use
  Company Number: GB-ASCEND THERAPEUTICS US, LLC-2117811

PATIENT
  Age: 68 Year
  Sex: Female
  Weight: 79.37 kg

DRUGS (5)
  1. ATENOLOL. [Concomitant]
     Active Substance: ATENOLOL
     Route: 065
  2. ESTROGEL [Suspect]
     Active Substance: ESTRADIOL
     Indication: HORMONE REPLACEMENT THERAPY
     Route: 061
     Dates: start: 20210511, end: 20210609
  3. ESTROGEL [Suspect]
     Active Substance: ESTRADIOL
  4. OESTROGEL(ESTRADIOL)(GEL) [Suspect]
     Active Substance: ESTRADIOL
     Route: 061
     Dates: start: 20210511, end: 20210609
  5. PULMICORT(BUDESONIDE) [Concomitant]
     Route: 065

REACTIONS (7)
  - Product substitution issue [Unknown]
  - Tachycardia [Recovering/Resolving]
  - Insomnia [Recovering/Resolving]
  - Nausea [Recovering/Resolving]
  - Anxiety [Recovering/Resolving]
  - Headache [Recovering/Resolving]
  - Asthenia [Recovering/Resolving]
